FAERS Safety Report 17346909 (Version 1)
Quarter: 2020Q1

REPORT INFORMATION
  Report Type: Report from Study
  Country: US (occurrence: US)
  Receive Date: 20200129
  Receipt Date: 20200129
  Transmission Date: 20200409
  Serious: No
  Sender: FDA-Public Use
  Company Number: US-EXELIXIS-CABO-19022070

PATIENT
  Age: 69 Year
  Sex: Male

DRUGS (2)
  1. CABOMETYX [Suspect]
     Active Substance: CABOZANTINIB S-MALATE
     Indication: RENAL CANCER
     Dosage: 60 MG, QD (AM WITH FOOD)
     Dates: start: 20190527
  2. CABOMETYX [Suspect]
     Active Substance: CABOZANTINIB S-MALATE
     Dosage: 60 MG, QD (AM WITHOUT FOOD)

REACTIONS (9)
  - Oral pain [Recovered/Resolved]
  - Dry mouth [Recovered/Resolved]
  - Blood sodium decreased [Unknown]
  - Taste disorder [Not Recovered/Not Resolved]
  - Viral infection [Unknown]
  - Blister [Recovering/Resolving]
  - Constipation [Not Recovered/Not Resolved]
  - Product administration error [Unknown]
  - Pain in extremity [Not Recovered/Not Resolved]

NARRATIVE: CASE EVENT DATE: 20190613
